FAERS Safety Report 4583114-5 (Version None)
Quarter: 2005Q1

REPORT INFORMATION
  Report Type: 
  Country: None (occurrence: None)
  Receive Date: 20050125
  Receipt Date: 20041001
  Transmission Date: 20050727
  Serious: No
  Sender: FDA-Public Use
  Company Number: USA041079892

PATIENT
  Age: 66 Year
  Sex: Female
  Weight: 70 kg

DRUGS (2)
  1. FORTEO [Suspect]
     Indication: OSTEOPOROSIS
     Dosage: 20 UG/1 DAY
     Dates: start: 20031101
  2. PLAVIX [Concomitant]

REACTIONS (4)
  - CONTUSION [None]
  - INJECTION SITE HAEMORRHAGE [None]
  - SKIN NEOPLASM BLEEDING [None]
  - SKIN PAPILLOMA [None]
